FAERS Safety Report 25402124 (Version 1)
Quarter: 2025Q2

REPORT INFORMATION
  Report Type: Spontaneous
  Country: US (occurrence: US)
  Receive Date: 20250605
  Receipt Date: 20250605
  Transmission Date: 20250716
  Serious: Yes (Other)
  Sender: PFIZER
  Company Number: US-PFIZER INC-202500114235

PATIENT
  Age: 72 Year
  Sex: Male
  Weight: 98.43 kg

DRUGS (3)
  1. CHANTIX [Suspect]
     Active Substance: VARENICLINE TARTRATE
     Indication: Smoking cessation therapy
     Dosage: UNK, 2X/DAY
     Dates: start: 20250527
  2. COUMADIN [Suspect]
     Active Substance: WARFARIN SODIUM
     Indication: Coagulopathy
  3. BRILINTA [Suspect]
     Active Substance: TICAGRELOR
     Indication: Coagulopathy

REACTIONS (2)
  - Haemorrhage urinary tract [Not Recovered/Not Resolved]
  - Blood urine [Unknown]

NARRATIVE: CASE EVENT DATE: 20250601
